FAERS Safety Report 6448117-4 (Version None)
Quarter: 2009Q4

REPORT INFORMATION
  Report Type: 
  Country: None (occurrence: None)
  Receive Date: 20091120
  Receipt Date: 20091104
  Transmission Date: 20100525
  Serious: No
  Sender: FDA-Public Use
  Company Number: US-BAYER-200937589NA

PATIENT
  Age: 38 Year
  Sex: Female

DRUGS (1)
  1. MIRENA [Suspect]
     Indication: CONTRACEPTION
     Dosage: CONTINUOUS
     Route: 015
     Dates: start: 20080601

REACTIONS (8)
  - ALOPECIA [None]
  - AMENORRHOEA [None]
  - BREAST SWELLING [None]
  - BREAST TENDERNESS [None]
  - MENORRHAGIA [None]
  - OVARIAN CYST [None]
  - PROCEDURAL PAIN [None]
  - VAGINAL HAEMORRHAGE [None]
